FAERS Safety Report 7052793-5 (Version None)
Quarter: 2010Q4

REPORT INFORMATION
  Report Type: 
  Country: None (occurrence: None)
  Receive Date: 20101012
  Receipt Date: 20101005
  Transmission Date: 20110411
  Serious: Yes (Death, Life-Threatening)
  Sender: FDA-Public Use
  Company Number: B0678294A

PATIENT

DRUGS (1)
  1. FONDAPARINUX SODIUM [Suspect]
     Indication: COAGULOPATHY

REACTIONS (2)
  - HAEMORRHAGE [None]
  - SHOCK [None]
